FAERS Safety Report 17910226 (Version 1)
Quarter: 2020Q2

REPORT INFORMATION
  Report Type: Spontaneous
  Country: US (occurrence: US)
  Receive Date: 20200618
  Receipt Date: 20200618
  Transmission Date: 20200714
  Serious: Yes (Hospitalization, Other)
  Sender: FDA-Public Use
  Company Number: US-ROCHE-2619826

PATIENT
  Sex: Male

DRUGS (6)
  1. PROLIA [Concomitant]
     Active Substance: DENOSUMAB
  2. BENDAMUSTINE [Suspect]
     Active Substance: BENDAMUSTINE
     Indication: CHRONIC LYMPHOCYTIC LEUKAEMIA
     Route: 065
  3. CALQUENCE [Concomitant]
     Active Substance: ACALABRUTINIB
     Indication: CHRONIC LYMPHOCYTIC LEUKAEMIA
     Route: 065
     Dates: start: 20200430
  4. VENCLEXTA [Suspect]
     Active Substance: VENETOCLAX
     Indication: CHRONIC LYMPHOCYTIC LEUKAEMIA
     Route: 048
     Dates: start: 201809, end: 20200521
  5. RITUXIMAB. [Suspect]
     Active Substance: RITUXIMAB
     Indication: CHRONIC LYMPHOCYTIC LEUKAEMIA
     Route: 065
     Dates: start: 201612
  6. LEUPRORELIN [Concomitant]
     Active Substance: LEUPROLIDE ACETATE
     Indication: PROSTATE CANCER

REACTIONS (7)
  - White blood cell count increased [Unknown]
  - Metastasis [Not Recovered/Not Resolved]
  - Feeling abnormal [Recovered/Resolved]
  - Prostatectomy [Recovered/Resolved]
  - Gene mutation [Unknown]
  - Nausea [Recovered/Resolved]
  - Tumour compression [Not Recovered/Not Resolved]

NARRATIVE: CASE EVENT DATE: 2019
